FAERS Safety Report 8783325 (Version 1)
Quarter: 2012Q4

REPORT INFORMATION
  Report Type: Report from Study
  Country: US (occurrence: US)
  Receive Date: 20120913
  Receipt Date: 20120913
  Transmission Date: 20130627
  Serious: No
  Sender: FDA-Public Use
  Company Number: US-VERTEX PHARMACEUTICAL INC.-AE-2012-008980

PATIENT
  Sex: Male
  Weight: 87.27 kg

DRUGS (4)
  1. INCIVEK [Suspect]
     Indication: HEPATITIS C
     Route: 048
  2. RIBAVIRIN [Concomitant]
     Indication: HEPATITIS C
  3. PEGASYS [Concomitant]
     Indication: HEPATITIS C
     Route: 058
  4. CENTRUM [Concomitant]

REACTIONS (8)
  - Dizziness [Unknown]
  - Tremor [Unknown]
  - Weight decreased [Unknown]
  - Dry mouth [Unknown]
  - Fatigue [Unknown]
  - Rash [Unknown]
  - Dysgeusia [Unknown]
  - Nausea [Unknown]
